FAERS Safety Report 19780564 (Version 1)
Quarter: 2021Q3

REPORT INFORMATION
  Report Type: Spontaneous
  Country: BR (occurrence: BR)
  Receive Date: 20210902
  Receipt Date: 20210902
  Transmission Date: 20211014
  Serious: Yes (Other)
  Sender: FDA-Public Use
  Company Number: BR-AMGEN-BRASP2021132654

PATIENT
  Age: 46 Year
  Sex: Female
  Weight: 96 kg

DRUGS (10)
  1. METFORMIN [Concomitant]
     Active Substance: METFORMIN HYDROCHLORIDE
     Dosage: 850 MILLIGRAM, QD
     Route: 048
  2. PERTUZUMAB. [Concomitant]
     Active Substance: PERTUZUMAB
     Dosage: 840 MILLIGRAM
     Route: 042
     Dates: start: 20210820, end: 20210820
  3. CAPTOPRIL. [Concomitant]
     Active Substance: CAPTOPRIL
     Dosage: 25 MILLIGRAM, Q12H
     Route: 048
  4. KANJINTI [Suspect]
     Active Substance: TRASTUZUMAB-ANNS
     Indication: PRODUCT USED FOR UNKNOWN INDICATION
     Dosage: 768 MILLIGRAM
     Route: 042
     Dates: start: 20210820, end: 20210820
  5. SPIRONOLACTONE. [Concomitant]
     Active Substance: SPIRONOLACTONE
     Dosage: 25 MILLIGRAM, BID
     Route: 048
  6. CARVEDILOL. [Concomitant]
     Active Substance: CARVEDILOL
     Dosage: 12.5 MILLIGRAM, Q12H
     Route: 048
  7. DOCETAXEL. [Concomitant]
     Active Substance: DOCETAXEL
     Dosage: 162.75 UNK
     Route: 042
  8. DEXAMETHASONE. [Concomitant]
     Active Substance: DEXAMETHASONE
     Dosage: 10 MILLIGRAM
     Route: 042
     Dates: start: 20210820, end: 20210820
  9. ONDANSETRON [Concomitant]
     Active Substance: ONDANSETRON
     Dosage: 8 MILLIGRAM
     Route: 042
     Dates: start: 20210820, end: 20210820
  10. DIOSMINA HESPERIDINA [Concomitant]
     Dosage: 500 MILLIGRAM, QD

REACTIONS (8)
  - Depressed level of consciousness [Recovered/Resolved]
  - Hyperhidrosis [Recovered/Resolved]
  - Hypotension [Recovered/Resolved]
  - Oxygen saturation decreased [Recovered/Resolved]
  - Malaise [Recovered/Resolved]
  - Hypertension [Recovered/Resolved]
  - Off label use [Unknown]
  - Tremor [Recovered/Resolved]

NARRATIVE: CASE EVENT DATE: 20210820
